FAERS Safety Report 10203572 (Version 3)
Quarter: 2014Q2

REPORT INFORMATION
  Report Type: Spontaneous
  Country: FR (occurrence: FR)
  Receive Date: 20140529
  Receipt Date: 20140530
  Transmission Date: 20141212
  Serious: Yes (Death)
  Sender: FDA-Public Use
  Company Number: FR-JNJFOC-20140106099

PATIENT
  Sex: Female

DRUGS (4)
  1. XARELTO [Suspect]
     Indication: CEREBROVASCULAR ACCIDENT PROPHYLAXIS
     Route: 048
     Dates: start: 20130711
  2. XARELTO [Suspect]
     Indication: ATRIAL FIBRILLATION
     Route: 048
     Dates: start: 20130711
  3. FLECAINE [Concomitant]
     Route: 065
  4. NEO MERCAZOLE [Concomitant]
     Route: 065

REACTIONS (3)
  - Aneurysm ruptured [Fatal]
  - Cerebral haemorrhage [Fatal]
  - Gingival bleeding [Unknown]
